FAERS Safety Report 5141889-0 (Version None)
Quarter: 2006Q4

REPORT INFORMATION
  Report Type: 
  Country: None (occurrence: None)
  Receive Date: 20061026
  Receipt Date: 20061016
  Transmission Date: 20070319
  Serious: Yes (Other)
  Sender: FDA-Public Use
  Company Number: HQWYE140116OCT06

PATIENT
  Age: 31 Year
  Sex: Female

DRUGS (4)
  1. VENLAFAXINE HCL [Suspect]
     Indication: MAJOR DEPRESSION
     Dosage: 18075 MG 1X PER 1 DAY
  2. VENLAFAXINE HCL [Suspect]
     Indication: PANIC DISORDER
     Dosage: 18075 MG 1X PER 1 DAY
  3. CLOMIPRAMINE HCL [Concomitant]
  4. CLOTIAZEPAM (CLOTIAZEPAM) [Concomitant]

REACTIONS (1)
  - DRUG WITHDRAWAL SYNDROME [None]
